FAERS Safety Report 8807036 (Version 3)
Quarter: 2012Q4

REPORT INFORMATION
  Report Type: 
  Country: GB (occurrence: GB)
  Receive Date: 20120925
  Receipt Date: 20121029
  Transmission Date: 20130627
  Serious: Yes (Hospitalization)
  Sender: FDA-Public Use
  Company Number: PHFR2012GB005059

PATIENT
  Age: 15 Year
  Sex: Male

DRUGS (3)
  1. ACZ885 [Suspect]
     Indication: CRYOPYRIN ASSOCIATED PERIODIC SYNDROME
     Dosage: 150 mg, UNK
     Route: 058
     Dates: start: 20120726
  2. ACZ885 [Suspect]
     Indication: MUCKLE-WELLS SYNDROME
  3. AMOXICILLIN [Concomitant]
     Dates: start: 20120803, end: 20120829

REACTIONS (2)
  - Tonsillitis [Recovered/Resolved]
  - Post procedural haemorrhage [Recovered/Resolved]
